FAERS Safety Report 9285681 (Version 2)
Quarter: 2013Q2

REPORT INFORMATION
  Report Type: Spontaneous
  Country: DE (occurrence: DE)
  Receive Date: 20130513
  Receipt Date: 20130520
  Transmission Date: 20140414
  Serious: Yes (Death)
  Sender: FDA-Public Use
  Company Number: DE-JNJFOC-20130501029

PATIENT
  Sex: Female
  Weight: 80 kg

DRUGS (4)
  1. XEPLION [Suspect]
     Indication: SCHIZOPHRENIA, PARANOID TYPE
     Route: 030
     Dates: start: 20130424, end: 20130424
  2. RISPERDAL [Suspect]
     Indication: SCHIZOPHRENIA, PARANOID TYPE
     Route: 065
     Dates: start: 201304, end: 20130425
  3. HALDOL [Concomitant]
     Indication: SCHIZOPHRENIA, PARANOID TYPE
     Route: 065
     Dates: start: 20130329, end: 20130427
  4. LORAZEPAM [Concomitant]
     Indication: SCHIZOPHRENIA, PARANOID TYPE
     Dosage: 1.0 - 2.0 MG/DAY
     Route: 065
     Dates: start: 20130329, end: 20130427

REACTIONS (1)
  - Completed suicide [Fatal]
